FAERS Safety Report 5262985-3 (Version None)
Quarter: 2007Q1

REPORT INFORMATION
  Report Type: 
  Country: None (occurrence: None)
  Receive Date: 20061219
  Receipt Date: 20061117
  Transmission Date: 20070707
  Serious: No
  Sender: FDA-Public Use
  Company Number: 2006US002733

PATIENT
  Age: 71 Year
  Sex: Female

DRUGS (3)
  1. VESICARE [Suspect]
     Dosage: 5 MG, ORAL
     Route: 048
     Dates: start: 20061101, end: 20061105
  2. ASPIRIN [Concomitant]
  3. DETROL [Concomitant]

REACTIONS (6)
  - ABDOMINAL PAIN UPPER [None]
  - DEPRESSION [None]
  - DIZZINESS [None]
  - FATIGUE [None]
  - NAUSEA [None]
  - PSYCHOMOTOR HYPERACTIVITY [None]
